FAERS Safety Report 4997555-5 (Version None)
Quarter: 2006Q2

REPORT INFORMATION
  Report Type: 
  Country: None (occurrence: None)
  Receive Date: 20060509
  Receipt Date: 20060407
  Transmission Date: 20061013
  Serious: Yes (Death, Other)
  Sender: FDA-Public Use
  Company Number: US-MERCK-0604USA01898

PATIENT
  Age: 72 Year
  Sex: Female

DRUGS (6)
  1. VIOXX [Suspect]
     Indication: OSTEOARTHRITIS
     Route: 048
  2. FOSAMAX [Concomitant]
     Route: 065
  3. COMBIVENT [Concomitant]
     Route: 065
  4. ZESTRIL [Concomitant]
     Route: 065
  5. SINGULAIR [Concomitant]
     Route: 065
  6. PAXIL [Concomitant]
     Route: 065

REACTIONS (5)
  - CEREBROVASCULAR ACCIDENT [None]
  - HEPATIC CIRRHOSIS [None]
  - HEPATIC FAILURE [None]
  - RENAL FAILURE [None]
  - THROMBOSIS [None]
